FAERS Safety Report 22121008 (Version 7)
Quarter: 2023Q2

REPORT INFORMATION
  Report Type: Spontaneous
  Country: US (occurrence: US)
  Receive Date: 20230321
  Receipt Date: 20230621
  Transmission Date: 20230721
  Serious: No
  Sender: FDA-Public Use
  Company Number: US-PFIZER INC-PV202300050327

PATIENT
  Age: 9 Year
  Sex: Female
  Weight: 26.76 kg

DRUGS (2)
  1. GENOTROPIN [Suspect]
     Active Substance: SOMATROPIN
     Indication: Short stature
     Dosage: 1.3 MG, DAILY
     Route: 058
     Dates: start: 20230215
  2. GENOTROPIN [Suspect]
     Active Substance: SOMATROPIN
     Dosage: 1.3 MG
     Dates: start: 20230313

REACTIONS (5)
  - Drug dose omission by device [Not Recovered/Not Resolved]
  - Device information output issue [Unknown]
  - Device deployment issue [Unknown]
  - Device leakage [Unknown]
  - Device defective [Unknown]

NARRATIVE: CASE EVENT DATE: 20230301
